FAERS Safety Report 16001554 (Version 1)
Quarter: 2019Q1

REPORT INFORMATION
  Report Type: Spontaneous
  Country: CN (occurrence: CN)
  Receive Date: 20190225
  Receipt Date: 20190225
  Transmission Date: 20190418
  Serious: Yes (Disabling)
  Sender: FDA-Public Use
  Company Number: CN-PFIZER INC-2019073686

PATIENT
  Age: 63 Year
  Sex: Female
  Weight: 60 kg

DRUGS (8)
  1. MEDROL [Suspect]
     Active Substance: METHYLPREDNISOLONE
     Dosage: 0.25 DF, EVERY 2 WEEKS
  2. MEDROL [Suspect]
     Active Substance: METHYLPREDNISOLONE
     Indication: THERAPEUTIC PROCEDURE
     Dosage: 40 MG, 1X/DAY
     Route: 048
     Dates: start: 20180604, end: 20180804
  3. MEDROL [Suspect]
     Active Substance: METHYLPREDNISOLONE
     Dosage: 3 DF, DAILY
  4. MEDROL [Suspect]
     Active Substance: METHYLPREDNISOLONE
     Dosage: 5 DF, DAILY
  5. MEDROL [Suspect]
     Active Substance: METHYLPREDNISOLONE
     Dosage: 2 DF, DAILY
  6. MEDROL [Suspect]
     Active Substance: METHYLPREDNISOLONE
     Dosage: 1 DF, EVERY 10 DAYS
  7. MEDROL [Suspect]
     Active Substance: METHYLPREDNISOLONE
     Dosage: 6 MG, 1X/DAY
     Dates: start: 20190118
  8. MEDROL [Suspect]
     Active Substance: METHYLPREDNISOLONE
     Dosage: 0.5 DF, EVERY 10 DAYS

REACTIONS (1)
  - Osteonecrosis [Recovered/Resolved with Sequelae]

NARRATIVE: CASE EVENT DATE: 20181117
